FAERS Safety Report 18444653 (Version 2)
Quarter: 2020Q4

REPORT INFORMATION
  Report Type: Spontaneous
  Country: IT (occurrence: IT)
  Receive Date: 20201030
  Receipt Date: 20201102
  Transmission Date: 20210114
  Serious: Yes (Hospitalization, Other)
  Sender: FDA-Public Use
  Company Number: IT-PFIZER INC-2020416596

PATIENT
  Age: 71 Year
  Sex: Male

DRUGS (2)
  1. CAPECITABINE. [Suspect]
     Active Substance: CAPECITABINE
     Indication: ADENOCARCINOMA GASTRIC
     Dosage: 825 MG/M2, 2X/DAY FOR 14 DAYS IN A 21-DAYS CYCLE
     Dates: start: 201809, end: 201902
  2. OXALIPLATIN. [Suspect]
     Active Substance: OXALIPLATIN
     Indication: ADENOCARCINOMA GASTRIC
     Dosage: 120 MG/M2, CYCLIC, ON DAY 1 IN A 21 DAYS CYCLE
     Dates: start: 201809, end: 201902

REACTIONS (2)
  - Hepatic necrosis [Recovering/Resolving]
  - Hepatic infarction [Recovering/Resolving]

NARRATIVE: CASE EVENT DATE: 201902
